FAERS Safety Report 20543448 (Version 3)
Quarter: 2024Q2

REPORT INFORMATION
  Report Type: Report from Study
  Country: US (occurrence: US)
  Receive Date: 20220302
  Receipt Date: 20240620
  Transmission Date: 20240716
  Serious: Yes (Hospitalization, Other)
  Sender: FDA-Public Use
  Company Number: US-ROCHE-2974925

PATIENT
  Age: 50 Year
  Sex: Female
  Weight: 88.45 kg

DRUGS (16)
  1. OCREVUS [Suspect]
     Active Substance: OCRELIZUMAB
     Indication: Relapsing-remitting multiple sclerosis
     Dosage: 300 MG IV AS DIRECTED 600MG IVQ 6 MONTHS -30 DAYS; DATE OF TREATMENTS: 29/APR/2019, 13/MAY/2019, 17/
     Route: 042
     Dates: start: 201905
  2. OCREVUS [Suspect]
     Active Substance: OCRELIZUMAB
     Indication: Visual impairment
     Route: 042
     Dates: start: 20210602
  3. OCREVUS [Suspect]
     Active Substance: OCRELIZUMAB
     Route: 042
     Dates: start: 20201119
  4. OCREVUS [Suspect]
     Active Substance: OCRELIZUMAB
     Route: 042
     Dates: start: 20190917
  5. PREDNISONE [Concomitant]
     Active Substance: PREDNISONE
  6. ACETAMINOPHEN\DICHLORALPHENAZONE\ISOMETHEPTENE [Concomitant]
     Active Substance: ACETAMINOPHEN\DICHLORALPHENAZONE\ISOMETHEPTENE
  7. LEVOTHYROXINE SODIUM [Concomitant]
     Active Substance: LEVOTHYROXINE SODIUM
     Route: 048
  8. OMEPRAZOLE [Concomitant]
     Active Substance: DONEPEZIL HYDROCHLORIDE\OMEPRAZOLE\OMEPRAZOLE MAGNESIUM
  9. METOPROLOL TARTRATE [Concomitant]
     Active Substance: METOPROLOL TARTRATE
  10. ESTRADIOL [Concomitant]
     Active Substance: ESTRADIOL
  11. HYDROXYZINE HYDROCHLORIDE [Concomitant]
     Active Substance: HYDROXYZINE HYDROCHLORIDE
  12. TRAMADOL HCL [Concomitant]
     Active Substance: TRAMADOL HYDROCHLORIDE
  13. IBUPROFEN [Concomitant]
     Active Substance: IBUPROFEN
  14. GABAPENTIN [Concomitant]
     Active Substance: GABAPENTIN
  15. TRAZODONE [Concomitant]
     Active Substance: TRAZODONE HYDROCHLORIDE
  16. FLECAINIDE ACETATE [Concomitant]
     Active Substance: FLECAINIDE ACETATE

REACTIONS (18)
  - Hypoaesthesia [Unknown]
  - Pain [Not Recovered/Not Resolved]
  - Multiple sclerosis [Unknown]
  - Romberg test positive [Unknown]
  - Vision blurred [Unknown]
  - Muscle spasms [Unknown]
  - Thirst [Unknown]
  - Nausea [Unknown]
  - Aphasia [Unknown]
  - Pollakiuria [Unknown]
  - Pneumonia streptococcal [Recovered/Resolved]
  - COVID-19 pneumonia [Recovered/Resolved]
  - Disturbance in attention [Unknown]
  - Dry eye [Unknown]
  - Fatigue [Unknown]
  - Fall [Unknown]
  - Temperature intolerance [Not Recovered/Not Resolved]
  - Candida infection [Recovered/Resolved]

NARRATIVE: CASE EVENT DATE: 20211203
